FAERS Safety Report 4562586-6 (Version None)
Quarter: 2005Q1

REPORT INFORMATION
  Report Type: 
  Country: None (occurrence: None)
  Receive Date: 20050127
  Receipt Date: 20050106
  Transmission Date: 20050727
  Serious: Yes (Hospitalization)
  Sender: FDA-Public Use
  Company Number: JP-ROCHE-391977

PATIENT
  Age: 60 Year
  Sex: Female

DRUGS (3)
  1. XELODA [Suspect]
     Indication: BREAST CANCER METASTATIC
     Route: 048
     Dates: start: 20040804, end: 20041012
  2. XELODA [Suspect]
     Route: 048
     Dates: start: 20041215, end: 20041228
  3. DOCETAXEL [Concomitant]
     Indication: BREAST CANCER METASTATIC
     Dosage: DRUG NAME: DOCETAXEL HYDRATE.
     Dates: start: 20040114, end: 20040623

REACTIONS (10)
  - ACTIVITIES OF DAILY LIVING IMPAIRED [None]
  - DISCOMFORT [None]
  - DYSAESTHESIA [None]
  - ERYTHEMA [None]
  - HERPES ZOSTER [None]
  - HYPOAESTHESIA [None]
  - PAIN [None]
  - PALMAR-PLANTAR ERYTHRODYSAESTHESIA SYNDROME [None]
  - PARAESTHESIA [None]
  - SWELLING [None]
